FAERS Safety Report 4720420-5 (Version None)
Quarter: 2005Q3

REPORT INFORMATION
  Report Type: 
  Country: None (occurrence: None)
  Receive Date: 20050721
  Receipt Date: 20050704
  Transmission Date: 20060218
  Serious: Yes (Other)
  Sender: FDA-Public Use
  Company Number: JP-MERCK-0507USA00621

PATIENT
  Age: 50 Year
  Sex: Male
  Weight: 74 kg

DRUGS (9)
  1. PRIMAXIN [Suspect]
     Indication: LUNG INFECTION
     Route: 042
     Dates: start: 20050616, end: 20050625
  2. CLINDAMYCIN PHOSPHATE [Suspect]
     Indication: LUNG INFECTION
     Route: 042
     Dates: start: 20050616, end: 20050625
  3. SELBEX [Concomitant]
     Indication: LUNG INFECTION
     Route: 048
     Dates: start: 20050616, end: 20050625
  4. LOXONIN [Concomitant]
     Indication: LUNG INFECTION
     Route: 048
     Dates: start: 20050616, end: 20050625
  5. MILTAX [Concomitant]
     Indication: CHEST PAIN
     Route: 061
     Dates: start: 20050616, end: 20050625
  6. CRAVIT [Concomitant]
     Indication: LUNG INFECTION
     Route: 048
     Dates: start: 20050615, end: 20050616
  7. MUCODYNE [Concomitant]
     Indication: LUNG INFECTION
     Route: 048
     Dates: start: 20050615, end: 20050616
  8. NOLEPTAN [Concomitant]
     Indication: LUNG INFECTION
     Route: 048
     Dates: start: 20050615, end: 20050616
  9. PL-GRANULES [Concomitant]
     Indication: LUNG INFECTION
     Route: 048
     Dates: start: 20050615, end: 20050616

REACTIONS (1)
  - DRUG ERUPTION [None]
